FAERS Safety Report 9436078 (Version 2)
Quarter: 2013Q3

REPORT INFORMATION
  Report Type: Spontaneous
  Country: IT (occurrence: IT)
  Receive Date: 20130801
  Receipt Date: 20130802
  Transmission Date: 20140515
  Serious: Yes (Life-Threatening)
  Sender: FDA-Public Use
  Company Number: PHHY2013IT081542

PATIENT
  Sex: Female

DRUGS (3)
  1. RISPERIDONE [Suspect]
     Route: 048
  2. FLURAZEPAM [Suspect]
     Indication: DRUG ABUSE
     Route: 048
  3. LAMICTAL [Suspect]
     Indication: DRUG ABUSE
     Route: 048

REACTIONS (1)
  - Coma [Unknown]
